FAERS Safety Report 18734027 (Version 1)
Quarter: 2021Q1

REPORT INFORMATION
  Report Type: Other
  Country: CA (occurrence: CA)
  Receive Date: 20210113
  Receipt Date: 20210113
  Transmission Date: 20210419
  Serious: Yes (Hospitalization)
  Sender: FDA-Public Use
  Company Number: CA-TILLOMEDPR-2021-EPL-000037

PATIENT
  Age: 59 Year
  Sex: Male
  Weight: 78 kg

DRUGS (27)
  1. METOCLOPRAMIDE. [Concomitant]
     Active Substance: METOCLOPRAMIDE
  2. CYTARABINE. [Suspect]
     Active Substance: CYTARABINE
     Indication: NON-HODGKIN^S LYMPHOMA
     Dosage: UNK
  3. DEXILANT [Concomitant]
     Active Substance: DEXLANSOPRAZOLE
  4. DILAUDID [Concomitant]
     Active Substance: HYDROMORPHONE HYDROCHLORIDE
  5. DIMENHYDRINATE. [Concomitant]
     Active Substance: DIMENHYDRINATE
  6. LAX?A?DAY [Concomitant]
     Active Substance: POLYETHYLENE GLYCOL 3350
     Dosage: POWDER FOR SOLUTION
     Route: 048
  7. ONDANSETRON [Concomitant]
     Active Substance: ONDANSETRON
  8. DOCUSATE [Concomitant]
     Active Substance: DOCUSATE
  9. FLUCONAZOLE. [Concomitant]
     Active Substance: FLUCONAZOLE
  10. FUROSEMIDE. [Concomitant]
     Active Substance: FUROSEMIDE
  11. LORAZEPAM. [Concomitant]
     Active Substance: LORAZEPAM
  12. PANTOPRAZOLE [Concomitant]
     Active Substance: PANTOPRAZOLE
  13. ACYCLOVIR. [Concomitant]
     Active Substance: ACYCLOVIR
  14. OLANZAPINE. [Concomitant]
     Active Substance: OLANZAPINE
  15. VALACYCLOVIR [Concomitant]
     Active Substance: VALACYCLOVIR HYDROCHLORIDE
  16. CARMUSTINE. [Suspect]
     Active Substance: CARMUSTINE
     Indication: NON-HODGKIN^S LYMPHOMA
     Dosage: UNK
  17. ETOPOSIDE. [Suspect]
     Active Substance: ETOPOSIDE
     Indication: NON-HODGKIN^S LYMPHOMA
     Dosage: UNK
  18. EMEND [Concomitant]
     Active Substance: APREPITANT
  19. TRIMETHOPRIMSULFAMETHOXAZOLE [Concomitant]
     Active Substance: SULFAMETHOXAZOLE\TRIMETHOPRIM
  20. FILGRASTIM [Concomitant]
     Active Substance: FILGRASTIM
  21. MEROPENEM. [Concomitant]
     Active Substance: MEROPENEM
     Route: 042
  22. VANCOMYCIN [Concomitant]
     Active Substance: VANCOMYCIN
  23. MELPHALAN. [Suspect]
     Active Substance: MELPHALAN
     Indication: NON-HODGKIN^S LYMPHOMA
     Dosage: UNK
  24. DEXAMETHASONE. [Concomitant]
     Active Substance: DEXAMETHASONE
     Route: 065
  25. DIPHENHYDRAMINE. [Concomitant]
     Active Substance: DIPHENHYDRAMINE
  26. ENOXAPARIN [Concomitant]
     Active Substance: ENOXAPARIN
  27. SENNOSIDES. [Concomitant]
     Active Substance: SENNOSIDES

REACTIONS (3)
  - Febrile neutropenia [Recovered/Resolved]
  - Off label use [Unknown]
  - Streptococcal bacteraemia [Recovered/Resolved]
